FAERS Safety Report 5987883-9 (Version None)
Quarter: 2008Q4

REPORT INFORMATION
  Report Type: 
  Country: None (occurrence: None)
  Receive Date: 20081209
  Receipt Date: 20080603
  Transmission Date: 20090506
  Serious: No
  Sender: FDA-Public Use
  Company Number: US-TYCO HEALTHCARE/MALLINCKRODT-T200800958

PATIENT

DRUGS (3)
  1. ULTRATAG [Suspect]
     Indication: MULTIPLE GATED ACQUISITION SCAN
     Dosage: UNK, SINGLE
     Route: 042
     Dates: start: 20080602, end: 20080602
  2. ULTRA-TECHNEKOW [Suspect]
     Indication: MULTIPLE GATED ACQUISITION SCAN
     Dosage: 25 MCI, SINGLE
     Route: 042
     Dates: start: 20080602, end: 20080602
  3. CHEMOTHERAPEUTICS NOS [Concomitant]
     Indication: NEOPLASM PROPHYLAXIS

REACTIONS (3)
  - HOT FLUSH [None]
  - PARAESTHESIA [None]
  - PARAESTHESIA ORAL [None]
